FAERS Safety Report 9841310 (Version 2)
Quarter: 2014Q1

REPORT INFORMATION
  Report Type: Spontaneous
  Country: ES (occurrence: ES)
  Receive Date: 20140124
  Receipt Date: 20140306
  Transmission Date: 20141002
  Serious: Yes (Death, Life-Threatening)
  Sender: FDA-Public Use
  Company Number: ES-SA-2014SA006840

PATIENT
  Age: 81 Year
  Sex: Female

DRUGS (3)
  1. ARAVA [Suspect]
     Indication: ARTHRALGIA
     Route: 048
     Dates: start: 201101, end: 20131113
  2. PREDNISONA [Suspect]
     Indication: ARTHRALGIA
     Route: 048
     Dates: start: 201007, end: 20131113
  3. OMEPRAZOLE [Concomitant]
     Route: 048
     Dates: start: 201112, end: 20131113

REACTIONS (1)
  - Upper gastrointestinal haemorrhage [Fatal]
